FAERS Safety Report 5085277-4 (Version None)
Quarter: 2006Q3

REPORT INFORMATION
  Report Type: 
  Country: None (occurrence: None)
  Receive Date: 20060817
  Receipt Date: 20060804
  Transmission Date: 20061208
  Serious: Yes (Other)
  Sender: FDA-Public Use
  Company Number: FABR-11559

PATIENT
  Age: 42 Year
  Sex: Female
  Weight: 61.7 kg

DRUGS (8)
  1. FABRAZYME [Suspect]
     Indication: FABRY'S DISEASE
     Dosage: 65 NG Q2WKS; IV
     Route: 042
     Dates: start: 20050122
  2. TYLENOL [Suspect]
     Indication: PAIN
     Dosage: 650 MG Q4HR
  3. TYLENOL [Concomitant]
  4. DIOVAN [Concomitant]
  5. HYDROCHLOROTHIAZIDE [Concomitant]
  6. TEGRETOL [Concomitant]
  7. ASPIRIN [Concomitant]
  8. IRON SUPPLEMENT [Concomitant]

REACTIONS (12)
  - BLOOD ALKALINE PHOSPHATASE INCREASED [None]
  - BLOOD URINE PRESENT [None]
  - FABRY'S DISEASE [None]
  - HEPATIC ENZYME INCREASED [None]
  - HEPATIC TRAUMA [None]
  - HYPOTENSION [None]
  - RENAL CYST INFECTION [None]
  - RENAL CYST RUPTURED [None]
  - RENAL FAILURE ACUTE [None]
  - RENAL TUBULAR NECROSIS [None]
  - TRANSAMINASES INCREASED [None]
  - URINARY TRACT INFECTION [None]
